FAERS Safety Report 8198207-3 (Version None)
Quarter: 2012Q1

REPORT INFORMATION
  Report Type: 
  Country: None (occurrence: None)
  Receive Date: 20120309
  Receipt Date: 20120301
  Transmission Date: 20120608
  Serious: Yes (Other)
  Sender: FDA-Public Use
  Company Number: PHHY2012AU018835

PATIENT
  Sex: Female

DRUGS (1)
  1. GLEEVEC [Suspect]
     Dosage: 400 MG DAILY

REACTIONS (2)
  - INTERVERTEBRAL DISC PROTRUSION [None]
  - BACK PAIN [None]
